FAERS Safety Report 24415289 (Version 1)
Quarter: 2024Q4

REPORT INFORMATION
  Report Type: Report from Study
  Country: ES (occurrence: ES)
  Receive Date: 20241009
  Receipt Date: 20241009
  Transmission Date: 20250115
  Serious: Yes (Other)
  Sender: TEVA
  Company Number: ES-TEVA-VS-3250538

PATIENT
  Age: 64 Year
  Sex: Female

DRUGS (5)
  1. TERIPARATIDE [Suspect]
     Active Substance: TERIPARATIDE
     Indication: Osteoporosis
     Route: 065
     Dates: start: 20240911
  2. ACETAMINOPHEN [Concomitant]
     Active Substance: ACETAMINOPHEN
     Indication: Fracture pain
     Dosage: DOSAGE: 0-1-0-1-0
     Dates: start: 202408
  3. JANUVIA [Concomitant]
     Active Substance: SITAGLIPTIN PHOSPHATE
     Indication: Type 2 diabetes mellitus
     Dosage: DOSAGE: 1-0-0,START DATE: LONG TIME AGO
  4. ROSUVASTATIN [Concomitant]
     Active Substance: ROSUVASTATIN
     Indication: Hypercholesterolaemia
     Dosage: DOSAGE: 1-0-0,START DATE: LONG TIME AGO
  5. Nolotil [Concomitant]
     Indication: Fracture pain
     Dosage: TIME INTERVAL: 0.33333333 DAYS: DOSAGE: 1-0-1-0-1
     Dates: start: 202408

REACTIONS (5)
  - Muscular weakness [Not Recovered/Not Resolved]
  - Abdominal pain [Not Recovered/Not Resolved]
  - Dysstasia [Unknown]
  - Diarrhoea [Not Recovered/Not Resolved]
  - Discomfort [Unknown]

NARRATIVE: CASE EVENT DATE: 20240901
